FAERS Safety Report 7481686-4 (Version None)
Quarter: 2011Q2

REPORT INFORMATION
  Report Type: 
  Country: None (occurrence: None)
  Receive Date: 20110516
  Receipt Date: 20110510
  Transmission Date: 20111010
  Serious: Yes (Death)
  Sender: FDA-Public Use
  Company Number: NZ-ROCHE-776127

PATIENT
  Age: 60 Year
  Sex: Male

DRUGS (2)
  1. RIBAVIRIN [Suspect]
     Route: 065
  2. PEGASYS [Suspect]
     Route: 065

REACTIONS (3)
  - FATIGUE [None]
  - WEIGHT DECREASED [None]
  - HEPATIC NEOPLASM MALIGNANT [None]
